FAERS Safety Report 22113295 (Version 5)
Quarter: 2023Q1

REPORT INFORMATION
  Report Type: Spontaneous
  Country: US (occurrence: US)
  Receive Date: 20230320
  Receipt Date: 20230324
  Transmission Date: 20230417
  Serious: No
  Sender: FDA-Public Use
  Company Number: US-BIOGEN-2019BI00782491

PATIENT
  Sex: Male

DRUGS (2)
  1. TYSABRI [Suspect]
     Active Substance: NATALIZUMAB
     Indication: Multiple sclerosis
     Dosage: INFUSE OVER 1 HOUR
     Route: 050
     Dates: start: 20130610, end: 20190719
  2. TYSABRI [Suspect]
     Active Substance: NATALIZUMAB
     Route: 050
     Dates: start: 20200511

REACTIONS (11)
  - General physical health deterioration [Not Recovered/Not Resolved]
  - Loss of control of legs [Not Recovered/Not Resolved]
  - Amnesia [Not Recovered/Not Resolved]
  - Paraesthesia [Not Recovered/Not Resolved]
  - Motor dysfunction [Not Recovered/Not Resolved]
  - Multiple sclerosis relapse [Unknown]
  - Aspiration [Unknown]
  - Loss of consciousness [Unknown]
  - Head injury [Unknown]
  - Fall [Recovered/Resolved]
  - Multiple sclerosis [Unknown]
